FAERS Safety Report 5710378-4 (Version None)
Quarter: 2008Q2

REPORT INFORMATION
  Report Type: 
  Country: None (occurrence: None)
  Receive Date: 20080418
  Receipt Date: 20080407
  Transmission Date: 20081010
  Serious: Yes (Other)
  Sender: FDA-Public Use
  Company Number: GB-PFIZER INC-2008031802

PATIENT
  Age: 71 Year
  Sex: Male
  Weight: 75 kg

DRUGS (12)
  1. HYDROCORTISONE ACETATE [Suspect]
     Indication: MANTLE CELL LYMPHOMA
     Route: 042
  2. CHLORPHENIRAMINE MALEATE [Suspect]
     Indication: MANTLE CELL LYMPHOMA
     Route: 042
  3. RITUXIMAB [Suspect]
     Indication: MANTLE CELL LYMPHOMA
     Route: 042
  4. ACYCLOVIR [Concomitant]
     Route: 048
  5. ALLOPURINOL [Concomitant]
     Route: 048
  6. CHLORHEXIDINE GLUCONATE [Concomitant]
     Indication: PROPHYLAXIS
  7. FLUCONAZOLE [Concomitant]
     Indication: PROPHYLAXIS
     Route: 048
  8. RABEPRAZOLE SODIUM [Concomitant]
     Route: 048
  9. SIMVASTATIN [Concomitant]
     Route: 048
  10. CYCLOPHOSPHAMIDE [Concomitant]
  11. FLUDARABINE PHOSPHATE [Concomitant]
  12. MITOXANTRONE [Concomitant]

REACTIONS (3)
  - BODY TEMPERATURE INCREASED [None]
  - THROMBOCYTOPENIA [None]
  - TREMOR [None]
